FAERS Safety Report 19263784 (Version 2)
Quarter: 2021Q2

REPORT INFORMATION
  Report Type: Other
  Country: JP (occurrence: JP)
  Receive Date: 20210517
  Receipt Date: 20210617
  Transmission Date: 20210717
  Serious: Yes (Hospitalization, Other)
  Sender: FDA-Public Use
  Company Number: JP-ROCHE-2830796

PATIENT
  Age: 69 Year
  Sex: Female

DRUGS (2)
  1. ENTRECTINIB [Suspect]
     Active Substance: ENTRECTINIB
     Indication: SARCOMA
     Route: 048
     Dates: start: 20210423, end: 20210429
  2. LOXONIN [Concomitant]
     Active Substance: LOXOPROFEN SODIUM
     Route: 065

REACTIONS (5)
  - Blood creatinine increased [Recovered/Resolved]
  - Altered state of consciousness [Unknown]
  - Fracture [Unknown]
  - Acute kidney injury [Recovered/Resolved]
  - Hyperkaliuria [Recovered/Resolved]

NARRATIVE: CASE EVENT DATE: 20210429
